FAERS Safety Report 9677463 (Version 1)
Quarter: 2013Q4

REPORT INFORMATION
  Report Type: Spontaneous
  Country: US (occurrence: US)
  Receive Date: 20131108
  Receipt Date: 20131108
  Transmission Date: 20140711
  Serious: Yes (Other)
  Sender: FDA-Public Use
  Company Number: PHEH2013US023055

PATIENT
  Age: 58 Year
  Sex: Female

DRUGS (12)
  1. GLEEVEC [Suspect]
     Dosage: UNK UKN, UNK
     Dates: end: 201306
  2. TASIGNA [Suspect]
     Dosage: 200 MG, BID
     Dates: start: 201306
  3. IPRATROPIUM BROMIDE [Concomitant]
     Dosage: 0.06 UKN, BID
  4. FLUNISOLIDE [Concomitant]
     Dosage: 25 UG, UNK
  5. GABAPENTIN [Concomitant]
     Dosage: 300 MG, BID
  6. PREMPRO [Concomitant]
     Dosage: 625 UKN, UNK
  7. SYMBICORT [Concomitant]
  8. MULTIVITAMIN//VITAMINS NOS [Concomitant]
  9. VITAMIN C [Concomitant]
  10. GLUCOSAMINE [Concomitant]
  11. PROBIOTICS [Concomitant]
  12. ESTROGEN [Concomitant]

REACTIONS (8)
  - Asthma [Unknown]
  - Abdominal pain upper [Unknown]
  - Vomiting [Unknown]
  - Diarrhoea [Unknown]
  - Blood pressure decreased [Unknown]
  - Dehydration [Unknown]
  - Weight decreased [Unknown]
  - Cough [Unknown]
